FAERS Safety Report 13331909 (Version 1)
Quarter: 2017Q1

REPORT INFORMATION
  Report Type: Spontaneous
  Country: US (occurrence: US)
  Receive Date: 20170314
  Receipt Date: 20170314
  Transmission Date: 20170428
  Serious: No
  Sender: FDA-Public Use
  Company Number: US-JNJFOC-20170200768

PATIENT
  Age: 11 Year
  Sex: Female
  Weight: 52.16 kg

DRUGS (2)
  1. TYLENOL [Suspect]
     Active Substance: ACETAMINOPHEN
     Route: 048
  2. TYLENOL [Suspect]
     Active Substance: ACETAMINOPHEN
     Indication: PRODUCT USED FOR UNKNOWN INDICATION
     Dosage: 1 TABLET
     Route: 048
     Dates: start: 20170131, end: 20170131

REACTIONS (2)
  - Product difficult to swallow [Unknown]
  - Retching [Unknown]

NARRATIVE: CASE EVENT DATE: 20170131
